FAERS Safety Report 7687389-5 (Version None)
Quarter: 2011Q3

REPORT INFORMATION
  Report Type: 
  Country: None (occurrence: None)
  Receive Date: 20110816
  Receipt Date: 20110812
  Transmission Date: 20111222
  Serious: Yes (Life-Threatening, Hospitalization, Disabling, Other)
  Sender: FDA-Public Use
  Company Number: US-BAYER-2011-032452

PATIENT
  Sex: Female

DRUGS (14)
  1. HYDROCODONE [Concomitant]
  2. ALBUTEROL SULFATE AUTOHALER [Concomitant]
  3. TRAMADOL HCL [Concomitant]
  4. AVELOX [Suspect]
     Indication: CHRONIC OBSTRUCTIVE PULMONARY DISEASE
  5. DOCUSATE [Concomitant]
  6. GUAIFENESIN [Concomitant]
  7. INSULIN [Concomitant]
  8. FERROUS SULFATE TAB [Concomitant]
  9. ACIDOPHILUS [Concomitant]
  10. CHLORPHENIRAMINE MALEATE [Concomitant]
  11. METOPROLOL TARTRATE [Concomitant]
  12. PREDNISONE [Concomitant]
  13. AVELOX [Suspect]
     Indication: BRONCHITIS
     Dosage: 400 MG, QD
     Route: 048
     Dates: start: 20110406
  14. GLIPIZIDE [Concomitant]

REACTIONS (1)
  - PANCYTOPENIA [None]
